FAERS Safety Report 11882769 (Version 1)
Quarter: 2015Q4

REPORT INFORMATION
  Report Type: Spontaneous
  Country: GB (occurrence: GB)
  Receive Date: 20151231
  Receipt Date: 20151231
  Transmission Date: 20160305
  Serious: Yes (Life-Threatening, Hospitalization)
  Sender: FDA-Public Use
  Company Number: GB-SA-2015SA221122

PATIENT
  Age: 57 Year
  Sex: Male
  Weight: 70 kg

DRUGS (8)
  1. AMOXICILLIN. [Concomitant]
     Active Substance: AMOXICILLIN
     Indication: ENDOCARDITIS
  2. RIFAMPICIN [Suspect]
     Active Substance: RIFAMPIN
     Indication: ENDOCARDITIS
     Route: 048
     Dates: start: 20151209, end: 20151211
  3. DALTEPARIN [Concomitant]
     Active Substance: DALTEPARIN
  4. LORATADINE. [Concomitant]
     Active Substance: LORATADINE
  5. OLANZAPINE. [Concomitant]
     Active Substance: OLANZAPINE
     Dosage: PATIENT HAS BEEN TAKING OLANZAPINE SINCE THE BEGINNING OF NOVEMBER
     Dates: start: 201511
  6. GENTAMICIN. [Concomitant]
     Active Substance: GENTAMICIN
     Indication: ENDOCARDITIS
  7. FERROUS FUMARATE [Concomitant]
     Active Substance: FERROUS FUMARATE
  8. RAMIPRIL. [Concomitant]
     Active Substance: RAMIPRIL

REACTIONS (2)
  - Sepsis [Recovering/Resolving]
  - Neutropenia [Recovering/Resolving]

NARRATIVE: CASE EVENT DATE: 20151210
